FAERS Safety Report 23537944 (Version 1)
Quarter: 2024Q1

REPORT INFORMATION
  Report Type: Spontaneous
  Country: US (occurrence: US)
  Receive Date: 20240219
  Receipt Date: 20240219
  Transmission Date: 20240410
  Serious: Yes (Other)
  Sender: FDA-Public Use
  Company Number: US-GLAXOSMITHKLINE-US2024AMR019612

PATIENT

DRUGS (1)
  1. ZEJULA [Suspect]
     Active Substance: NIRAPARIB
     Indication: Ovarian cancer
     Dosage: 100 MG, QD
     Route: 048
     Dates: start: 20240206

REACTIONS (6)
  - Neuropathy peripheral [Unknown]
  - Nausea [Unknown]
  - Urticaria [Unknown]
  - Rash [Unknown]
  - Vitamin D decreased [Unknown]
  - Dysbiosis [Unknown]
